FAERS Safety Report 8392109 (Version 2)
Quarter: 2012Q4

REPORT INFORMATION
  Report Type: 
  Country: US (occurrence: US)
  Receive Date: 20120206
  Receipt Date: 20121026
  Transmission Date: 20130627
  Serious: Yes (Death, Hospitalization)
  Sender: FDA-Public Use
  Company Number: US-GLAXOSMITHKLINE-A0964633A

PATIENT
  Age: 50 Year
  Sex: Female

DRUGS (3)
  1. FLOLAN [Suspect]
     Indication: PULMONARY ARTERIAL HYPERTENSION
     Dosage: 22NGKM See dosage text
     Route: 042
     Dates: start: 20111028
  2. FUROSEMIDE [Concomitant]
     Dosage: 40MG Unknown
  3. WARFARIN SODIUM [Concomitant]
     Dosage: 7.5MG Unknown

REACTIONS (2)
  - Anaemia [Unknown]
  - Death [Fatal]
